FAERS Safety Report 20149089 (Version 1)
Quarter: 2021Q4

REPORT INFORMATION
  Report Type: Report from Study
  Country: BR (occurrence: BR)
  Receive Date: 20211204
  Receipt Date: 20211204
  Transmission Date: 20220303
  Serious: Yes (Other)
  Sender: FDA-Public Use
  Company Number: BR-NOVARTISPH-PHHY2017BR120267

PATIENT
  Age: 59 Year
  Sex: Female
  Weight: 72 kg

DRUGS (9)
  1. XOLAIR [Suspect]
     Active Substance: OMALIZUMAB
     Indication: Asthma
     Dosage: 150 MG, QMO
     Route: 058
     Dates: start: 20141002
  2. XOLAIR [Suspect]
     Active Substance: OMALIZUMAB
     Dosage: UNK
     Route: 058
     Dates: start: 20180112
  3. XOLAIR [Suspect]
     Active Substance: OMALIZUMAB
     Dosage: 2 DF, QMO
     Route: 058
     Dates: start: 20181105
  4. XOLAIR [Suspect]
     Active Substance: OMALIZUMAB
     Dosage: UNK
     Route: 065
     Dates: start: 201902
  5. XOLAIR [Suspect]
     Active Substance: OMALIZUMAB
     Dosage: UNK
     Route: 065
     Dates: start: 202108
  6. XOLAIR [Suspect]
     Active Substance: OMALIZUMAB
     Dosage: UNK
     Route: 065
  7. GLYCOPYRRONIUM\INDACATEROL [Suspect]
     Active Substance: GLYCOPYRRONIUM\INDACATEROL
     Indication: Product used for unknown indication
     Dosage: UNK
     Route: 065
  8. CYMBI [Concomitant]
     Indication: Asthma
     Dosage: UNK UNK, QD (3 YEARS)
     Route: 055
  9. SYMBICORT [Concomitant]
     Active Substance: BUDESONIDE\FORMOTEROL FUMARATE DIHYDRATE
     Indication: Asthma
     Dosage: UNK UNK, BID (1 MONTH)
     Route: 055

REACTIONS (37)
  - Pneumonitis [Recovered/Resolved]
  - Empyema [Recovered/Resolved]
  - Dyspnoea [Not Recovered/Not Resolved]
  - Asthma [Recovered/Resolved]
  - Appendicitis [Recovered/Resolved]
  - Syncope [Recovered/Resolved]
  - Jaw fracture [Recovering/Resolving]
  - Diabetic metabolic decompensation [Recovering/Resolving]
  - Tremor [Recovering/Resolving]
  - Asthmatic crisis [Unknown]
  - Pneumonia [Unknown]
  - Malaise [Unknown]
  - Sneezing [Unknown]
  - Oropharyngeal discomfort [Unknown]
  - Wheezing [Not Recovered/Not Resolved]
  - Catarrh [Unknown]
  - Secretion discharge [Unknown]
  - Inflammation [Recovering/Resolving]
  - Infection [Recovering/Resolving]
  - Sensitivity to weather change [Unknown]
  - Hypersensitivity [Recovering/Resolving]
  - COVID-19 [Recovering/Resolving]
  - Asthenia [Recovering/Resolving]
  - Dysphagia [Recovering/Resolving]
  - Ageusia [Recovering/Resolving]
  - Abdominal discomfort [Recovering/Resolving]
  - Vomiting [Recovering/Resolving]
  - Lung disorder [Recovering/Resolving]
  - Ill-defined disorder [Recovering/Resolving]
  - Gait disturbance [Recovering/Resolving]
  - Speech disorder [Recovering/Resolving]
  - Cough [Recovering/Resolving]
  - Headache [Recovering/Resolving]
  - Anosmia [Recovering/Resolving]
  - Memory impairment [Unknown]
  - Vein disorder [Unknown]
  - Therapeutic response delayed [Unknown]

NARRATIVE: CASE EVENT DATE: 20190401
